FAERS Safety Report 25328733 (Version 1)
Quarter: 2025Q2

REPORT INFORMATION
  Report Type: Spontaneous
  Country: US (occurrence: US)
  Receive Date: 20250519
  Receipt Date: 20250519
  Transmission Date: 20250716
  Serious: No
  Sender: SANOFI AVENTIS
  Company Number: US-SA-2025SA141462

PATIENT
  Sex: Female
  Weight: 58.96 kg

DRUGS (10)
  1. DUPIXENT [Suspect]
     Active Substance: DUPILUMAB
     Indication: Dermatitis atopic
     Dosage: 300 MG, QOW
     Route: 058
     Dates: start: 202402
  2. CLINDAMYCIN HYDROCHLORIDE [Concomitant]
     Active Substance: CLINDAMYCIN HYDROCHLORIDE
  3. CIPROFLOXACIN HYDROCHLORIDE [Concomitant]
     Active Substance: CIPROFLOXACIN HYDROCHLORIDE
  4. LEVOFLOXACIN [Concomitant]
     Active Substance: LEVOFLOXACIN
  5. PREDNISONE [Concomitant]
     Active Substance: PREDNISONE
  6. KEYTRUDA [Concomitant]
     Active Substance: PEMBROLIZUMAB
  7. GAS RELIEF [Concomitant]
     Active Substance: DIMETHICONE
  8. ASPIRIN [Concomitant]
     Active Substance: ASPIRIN
  9. NAPROXEN [Concomitant]
     Active Substance: NAPROXEN
  10. TYLENOL [Concomitant]
     Active Substance: ACETAMINOPHEN

REACTIONS (2)
  - Limb injury [Unknown]
  - Localised infection [Unknown]
